FAERS Safety Report 17188265 (Version 3)
Quarter: 2020Q1

REPORT INFORMATION
  Report Type: Report from Study
  Country: CO (occurrence: CO)
  Receive Date: 20191221
  Receipt Date: 20200226
  Transmission Date: 20200409
  Serious: Yes (Other)
  Sender: FDA-Public Use
  Company Number: NVSC2019CO058260

PATIENT
  Sex: Female
  Weight: 75 kg

DRUGS (3)
  1. AFINITOR [Suspect]
     Active Substance: EVEROLIMUS
     Indication: RENAL CELL CARCINOMA
     Dosage: 10 MG, QD
     Route: 048
     Dates: start: 201910
  2. EXEMESTANE. [Suspect]
     Active Substance: EXEMESTANE
     Indication: BREAST CANCER
     Dosage: 25 MG, QD
     Route: 065
     Dates: start: 201910
  3. AFINITOR [Suspect]
     Active Substance: EVEROLIMUS
     Indication: BREAST CANCER
     Dosage: UNK
     Route: 065
     Dates: start: 201909

REACTIONS (11)
  - Inflammation [Unknown]
  - Breast cancer [Unknown]
  - Metastasis [Unknown]
  - Weight decreased [Unknown]
  - Lymphadenitis [Unknown]
  - Peripheral swelling [Unknown]
  - Stomatitis [Recovered/Resolved]
  - Spinal cord disorder [Unknown]
  - Decreased appetite [Unknown]
  - Malignant neoplasm progression [Unknown]
  - Drug ineffective [Unknown]
